FAERS Safety Report 8147639 (Version 3)
Quarter: 2013Q2

REPORT INFORMATION
  Report Type: Spontaneous
  Country: US (occurrence: US)
  Receive Date: 20110922
  Receipt Date: 20130514
  Transmission Date: 20140414
  Serious: Yes (Other)
  Sender: FDA-Public Use
  Company Number: US-ASTRAZENECA-2011SE12589

PATIENT
  Age: 53 Year
  Sex: Female

DRUGS (22)
  1. SEROQUEL [Suspect]
     Dosage: 50-100 MG
     Route: 048
     Dates: start: 20060108
  2. SEROQUEL [Suspect]
     Route: 048
     Dates: start: 20060624
  3. CYMBALTA [Concomitant]
     Dosage: 30-60 MG
     Route: 048
     Dates: start: 20060108
  4. CYMBALTA [Concomitant]
     Route: 048
     Dates: start: 20060315, end: 20090130
  5. NITROGLYCERINE [Concomitant]
     Dates: start: 20060425
  6. AMOXICILLIN/AMOX [Concomitant]
     Dates: start: 20060108
  7. AMOXICILLIN/AMOX [Concomitant]
     Dates: start: 20060503
  8. AMBIEN [Concomitant]
     Dates: start: 20060508
  9. GABAPENTIN [Concomitant]
     Dates: start: 20060624
  10. METOPROLOL [Concomitant]
     Dosage: 25-50 MG
     Dates: start: 20060108
  11. METOPROLOL [Concomitant]
     Dates: start: 20060624
  12. ALTACE [Concomitant]
     Dosage: 1.25-2.5 MG
     Dates: start: 20060108
  13. DOCUSATE SODIUM [Concomitant]
     Dates: start: 20060624
  14. SIMVASTATIN [Concomitant]
     Route: 048
     Dates: end: 20100812
  15. SIMVASTATIN [Concomitant]
     Dosage: 10-40 MG
     Route: 048
     Dates: start: 20060108
  16. ASPIRIN [Concomitant]
     Dosage: 81-325 MG
     Dates: start: 20060108
  17. CYCLOBENZAPRINE [Concomitant]
     Dates: start: 20060822
  18. HYDROCODONE [Concomitant]
     Dosage: 5/500,7.5/500
     Dates: start: 20060108
  19. PLAVIX/CLOPIDOGREL BISULFATE [Concomitant]
     Dates: start: 20060108
  20. CARTIA XT [Concomitant]
     Dates: start: 20060108
  21. ACETAMINOPHEN [Concomitant]
     Dates: start: 20061120
  22. PRILOSEC OTC [Concomitant]
     Dates: start: 20061120

REACTIONS (4)
  - Pancreatitis [Unknown]
  - Diabetic coma [Unknown]
  - Type 2 diabetes mellitus [Unknown]
  - Diabetes mellitus inadequate control [Unknown]
